FAERS Safety Report 9433611 (Version 2)
Quarter: 2013Q4

REPORT INFORMATION
  Report Type: Spontaneous
  Country: US (occurrence: US)
  Receive Date: 20130731
  Receipt Date: 20131030
  Transmission Date: 20140711
  Serious: No
  Sender: FDA-Public Use
  Company Number: US-ROXANE LABORATORIES, INC.-2013-RO-01278RO

PATIENT
  Age: 58 Year
  Sex: Female

DRUGS (1)
  1. ZALEPLON [Suspect]
     Indication: INSOMNIA
     Route: 048

REACTIONS (3)
  - Drug ineffective [Recovered/Resolved]
  - Hangover [Recovered/Resolved]
  - Product quality issue [Recovered/Resolved]
